FAERS Safety Report 8797750 (Version 1)
Quarter: 2012Q4

REPORT INFORMATION
  Report Type: 
  Country: US (occurrence: US)
  Receive Date: 20120919
  Receipt Date: 20120919
  Transmission Date: 20130627
  Serious: Yes (Death)
  Sender: FDA-Public Use
  Company Number: US-ROCHE-1103264

PATIENT
  Sex: Male
  Weight: 71.73 kg

DRUGS (9)
  1. TARCEVA [Suspect]
     Indication: PRODUCT USED FOR UNKNOWN INDICATION
  2. BEVACIZUMAB [Suspect]
     Indication: PRODUCT USED FOR UNKNOWN INDICATION
     Route: 042
     Dates: start: 20120521
  3. BEVACIZUMAB [Suspect]
     Route: 042
     Dates: start: 20120605
  4. BEVACIZUMAB [Suspect]
     Route: 042
     Dates: start: 20120619
  5. DEXAMETHASONE [Concomitant]
     Route: 048
  6. LEVOFLOXACIN [Concomitant]
     Route: 048
  7. KEPPRA [Concomitant]
     Dosage: 500 mg in morning and 1000 mg at Night
     Route: 048
  8. ACETAMINOPHEN/HYDROCODONE [Concomitant]
     Dosage: 325/10 mg 1-2 tablets every 4-6 hours as needed
     Route: 048
  9. LOVENOX [Concomitant]
     Dosage: 80 mg/0.8 ml
     Route: 058

REACTIONS (1)
  - Death [Fatal]
